FAERS Safety Report 6478533-6 (Version None)
Quarter: 2009Q4

REPORT INFORMATION
  Report Type: 
  Country: None (occurrence: None)
  Receive Date: 20091207
  Receipt Date: 20091127
  Transmission Date: 20100525
  Serious: Yes (Hospitalization)
  Sender: FDA-Public Use
  Company Number: AU-ASTRAZENECA-2009SE29219

PATIENT
  Age: 22270 Day
  Sex: Male

DRUGS (1)
  1. ROSUVASTATIN [Suspect]
     Route: 048

REACTIONS (5)
  - ABDOMINAL PAIN [None]
  - ATRIAL FIBRILLATION [None]
  - CARDIAC FAILURE CONGESTIVE [None]
  - HEPATOMEGALY [None]
  - JAUNDICE [None]
